FAERS Safety Report 23918016 (Version 2)
Quarter: 2024Q4

REPORT INFORMATION
  Report Type: Spontaneous
  Country: JP (occurrence: JP)
  Receive Date: 20240530
  Receipt Date: 20241024
  Transmission Date: 20250115
  Serious: Yes (Hospitalization)
  Sender: TAKEDA
  Company Number: JP-TAKEDA-2024TJP007692

PATIENT
  Age: 77 Year
  Sex: Female

DRUGS (1)
  1. ALUNBRIG [Suspect]
     Active Substance: BRIGATINIB
     Indication: Lung adenocarcinoma stage IV
     Dosage: 30 MILLIGRAM
     Route: 048

REACTIONS (3)
  - Pleurisy [Recovered/Resolved]
  - Off label use [Unknown]
  - Underdose [Unknown]
